FAERS Safety Report 19499648 (Version 1)
Quarter: 2021Q3

REPORT INFORMATION
  Report Type: Report from Study
  Country: US (occurrence: US)
  Receive Date: 20210707
  Receipt Date: 20210707
  Transmission Date: 20211014
  Serious: Yes (Death, Other)
  Sender: FDA-Public Use
  Company Number: US-ACADIA PHARMACEUTICALS INC.-ACA-2021-PIM-002406

PATIENT
  Sex: Female

DRUGS (20)
  1. LEVOTHYROXINE. [Concomitant]
     Active Substance: LEVOTHYROXINE
  2. METFORMIN [Concomitant]
     Active Substance: METFORMIN HYDROCHLORIDE
  3. CARBIDOPA/LEVODOPA [Concomitant]
     Active Substance: CARBIDOPA\LEVODOPA
  4. DILTIAZEM. [Concomitant]
     Active Substance: DILTIAZEM
  5. DONEPEZIL. [Concomitant]
     Active Substance: DONEPEZIL
  6. DORZOLAMIDE [Concomitant]
     Active Substance: DORZOLAMIDE
  7. DULOXETINE. [Concomitant]
     Active Substance: DULOXETINE
  8. FUROSEMIDE. [Concomitant]
     Active Substance: FUROSEMIDE
  9. SPIRIVA [Concomitant]
     Active Substance: TIOTROPIUM BROMIDE MONOHYDRATE
  10. ELIQUIS [Concomitant]
     Active Substance: APIXABAN
  11. LANTUS [Concomitant]
     Active Substance: INSULIN GLARGINE
  12. LISINOPRIL. [Concomitant]
     Active Substance: LISINOPRIL
  13. MIRTAZAPINE. [Concomitant]
     Active Substance: MIRTAZAPINE
  14. TIMOLOL MALEATE. [Concomitant]
     Active Substance: TIMOLOL MALEATE
  15. CYCLOPENTOL [Concomitant]
  16. BREO ELLIPTA [Concomitant]
     Active Substance: FLUTICASONE FUROATE\VILANTEROL TRIFENATATE
  17. PANTOPRAZOLE [Concomitant]
     Active Substance: PANTOPRAZOLE
  18. NUPLAZID [Suspect]
     Active Substance: PIMAVANSERIN TARTRATE
     Indication: PARKINSON^S DISEASE
     Dosage: 34 MILLIGRAM, QD
     Route: 048
  19. ALLOPURINOL. [Concomitant]
     Active Substance: ALLOPURINOL
  20. IPRATROPIUM [Concomitant]
     Active Substance: IPRATROPIUM

REACTIONS (1)
  - Death [Fatal]
